FAERS Safety Report 25688685 (Version 1)
Quarter: 2025Q3

REPORT INFORMATION
  Report Type: Spontaneous
  Country: EU (occurrence: EU)
  Receive Date: 20250818
  Receipt Date: 20250818
  Transmission Date: 20251020
  Serious: Yes (Other)
  Sender: SANDOZ
  Company Number: EU-MYLANLABS-2024M1090128

PATIENT
  Age: 73 Year
  Sex: Female
  Weight: 49 kg

DRUGS (16)
  1. ALPRAZOLAM [Suspect]
     Active Substance: ALPRAZOLAM
     Route: 065
  2. ALPRAZOLAM [Suspect]
     Active Substance: ALPRAZOLAM
     Indication: Anxiety
     Dosage: 1 MILLIGRAM, TID
     Route: 065
  3. ATORVASTATIN [Suspect]
     Active Substance: ATORVASTATIN
     Indication: Hypercholesterolaemia
     Dosage: 40 MILLIGRAM, PM
     Route: 065
  4. ASPIRIN [Suspect]
     Active Substance: ASPIRIN
     Indication: Cerebrovascular accident
     Dosage: 100 MILLIGRAM, AM
     Route: 065
  5. AMITRIPTYLINE [Suspect]
     Active Substance: AMITRIPTYLINE
     Indication: Pain
     Dosage: 75 MILLIGRAM, PM
     Route: 065
  6. BISOPROLOL [Suspect]
     Active Substance: BISOPROLOL
     Indication: Cardiac failure
     Dosage: 2.5 MILLIGRAM, AM
     Route: 065
  7. ENALAPRIL [Suspect]
     Active Substance: ENALAPRIL
     Indication: Hypertension
     Dosage: 20 MILLIGRAM, AM
     Route: 065
  8. METFORMIN [Suspect]
     Active Substance: METFORMIN HYDROCHLORIDE
     Indication: Type 2 diabetes mellitus
     Dosage: 850 MILLIGRAM, BID
     Route: 065
  9. OMEPRAZOLE [Suspect]
     Active Substance: OMEPRAZOLE
     Indication: Gastric pH decreased
     Dosage: 20 MILLIGRAM, AM
     Route: 065
  10. ACETAMINOPHEN [Suspect]
     Active Substance: ACETAMINOPHEN
     Indication: Pain
     Dosage: 1 GRAM, TID (ON DEMAND)
     Route: 065
  11. SCOPOLAMINE [Suspect]
     Active Substance: SCOPOLAMINE
     Indication: Pain
     Dosage: 10 MILLIGRAM, TID (ON DEMAND)
     Route: 065
  12. ZOLPIDEM [Suspect]
     Active Substance: ZOLPIDEM TARTRATE
     Indication: Insomnia
     Dosage: 10 MILLIGRAM, PM
     Route: 065
  13. BUTYLSCOPOLAMINE [Concomitant]
     Active Substance: BUTYLSCOPOLAMINE
     Indication: Product used for unknown indication
     Dosage: 10 MG, TID, AS REQUIRED
     Route: 065
  14. PAROXETINE [Interacting]
     Active Substance: PAROXETINE
     Dosage: 10 MILLIGRAM, QD
     Route: 065
  15. PAROXETINE [Interacting]
     Active Substance: PAROXETINE
     Indication: Product used for unknown indication
     Dosage: 20 MILLIGRAM, AM
     Route: 065
  16. TOLTERODINE [Interacting]
     Active Substance: TOLTERODINE
     Indication: Urinary incontinence
     Dosage: 4 MILLIGRAM, NOON
     Route: 065

REACTIONS (7)
  - Medication error [Unknown]
  - Daydreaming [Recovered/Resolved]
  - Anticholinergic effect [Unknown]
  - Patient elopement [Unknown]
  - Drug interaction [Unknown]
  - Dizziness [Recovered/Resolved]
  - Drug ineffective [Unknown]
